FAERS Safety Report 10023916 (Version 1)
Quarter: 2014Q1

REPORT INFORMATION
  Report Type: Spontaneous
  Country: US (occurrence: US)
  Receive Date: 20140320
  Receipt Date: 20140320
  Transmission Date: 20141002
  Serious: No
  Sender: FDA-Public Use
  Company Number: US-MYLANLABS-2013S1004404

PATIENT
  Age: 60 Year
  Sex: Female

DRUGS (2)
  1. TAMOXIFEN CITRATE TABLETS, USP [Suspect]
     Indication: BREAST CANCER
     Route: 048
     Dates: start: 201302
  2. ASPIRIN [Concomitant]
     Route: 048
     Dates: start: 201302

REACTIONS (5)
  - Vulvovaginal dryness [Not Recovered/Not Resolved]
  - Local swelling [Not Recovered/Not Resolved]
  - Bone pain [Not Recovered/Not Resolved]
  - Hot flush [Not Recovered/Not Resolved]
  - Vulvovaginal burning sensation [Not Recovered/Not Resolved]
